FAERS Safety Report 14123614 (Version 1)
Quarter: 2017Q4

REPORT INFORMATION
  Report Type: Spontaneous
  Country: US (occurrence: US)
  Receive Date: 20171025
  Receipt Date: 20171025
  Transmission Date: 20180321
  Serious: Yes (Death, Hospitalization)
  Sender: FDA-Public Use
  Company Number: US-BIOVITRUM-2017US0985

PATIENT
  Age: 5 Year
  Sex: Female

DRUGS (9)
  1. KINERET [Suspect]
     Active Substance: ANAKINRA
     Dates: start: 201612
  2. TACROLIMUS. [Concomitant]
     Active Substance: TACROLIMUS
     Indication: STILL^S DISEASE
  3. IVIG [Concomitant]
     Active Substance: HUMAN IMMUNOGLOBULIN G
     Indication: HISTIOCYTOSIS HAEMATOPHAGIC
     Dates: start: 201704
  4. KINERET [Suspect]
     Active Substance: ANAKINRA
     Indication: STILL^S DISEASE
     Dosage: HALF DOSE INJECTIONS EVERY OTHER DAY
     Dates: start: 2015, end: 201603
  5. PREDNISOLONE. [Concomitant]
     Active Substance: PREDNISOLONE
     Indication: STILL^S DISEASE
  6. KINERET [Suspect]
     Active Substance: ANAKINRA
     Dosage: 4 MG/KG/DAY
     Dates: start: 201603, end: 20161223
  7. KEFLEX [Concomitant]
     Active Substance: CEPHALEXIN
     Indication: CELLULITIS
  8. CORTICOSTEROIDS [Concomitant]
     Active Substance: CORTICOSTEROID NOS
     Indication: STILL^S DISEASE
  9. ETOPOSIDE. [Concomitant]
     Active Substance: ETOPOSIDE
     Indication: HISTIOCYTOSIS HAEMATOPHAGIC
     Dates: start: 201704

REACTIONS (23)
  - Urine output decreased [Unknown]
  - Lymphadenopathy [Unknown]
  - Chest X-ray abnormal [Unknown]
  - Pharyngitis streptococcal [Recovered/Resolved]
  - Pneumocystis jirovecii pneumonia [Unknown]
  - Cellulitis [Recovered/Resolved]
  - Fatigue [Unknown]
  - Injection site reaction [Recovered/Resolved]
  - Angioedema [Unknown]
  - Rash generalised [Recovered/Resolved]
  - Injection site pain [Recovered/Resolved]
  - Gastrointestinal haemorrhage [Unknown]
  - Abdominal compartment syndrome [Unknown]
  - Drug ineffective [Recovered/Resolved]
  - Cytomegalovirus test positive [Recovered/Resolved]
  - Tongue ulceration [Unknown]
  - Eyelid oedema [Recovered/Resolved]
  - Abdominal pain upper [Unknown]
  - Multiple organ dysfunction syndrome [Fatal]
  - Histiocytosis haematophagic [Unknown]
  - Erythema of eyelid [Recovered/Resolved]
  - Axillary mass [Unknown]
  - Subcutaneous abscess [Unknown]

NARRATIVE: CASE EVENT DATE: 2015
